FAERS Safety Report 6997529-9 (Version None)
Quarter: 2010Q3

REPORT INFORMATION
  Report Type: 
  Country: None (occurrence: None)
  Receive Date: 20100918
  Receipt Date: 20091103
  Transmission Date: 20110219
  Serious: No
  Sender: FDA-Public Use
  Company Number: US-WYE-H11995709

PATIENT
  Sex: Female
  Weight: 47.67 kg

DRUGS (2)
  1. PRISTIQ [Suspect]
     Indication: DEPRESSION
     Route: 048
     Dates: start: 20091025
  2. PRISTIQ [Suspect]
     Indication: INSOMNIA

REACTIONS (2)
  - FEELING ABNORMAL [None]
  - SOMNOLENCE [None]
